FAERS Safety Report 10061110 (Version 1)
Quarter: 2014Q2

REPORT INFORMATION
  Report Type: Spontaneous
  Country: US (occurrence: US)
  Receive Date: 20140406
  Receipt Date: 20140406
  Transmission Date: 20141212
  Serious: No
  Sender: FDA-Public Use
  Company Number: US-TEVA-472255USA

PATIENT
  Age: 86 Year
  Sex: Female
  Weight: 77.18 kg

DRUGS (9)
  1. PROAIR HFA [Suspect]
     Indication: CHEST PAIN
     Route: 055
     Dates: start: 20131115
  2. PROAIR HFA [Suspect]
     Indication: DYSPNOEA
  3. HYDRALAZINE [Concomitant]
     Indication: HYPERTENSION
     Dosage: 150 MILLIGRAM DAILY;
  4. OMEPRAZOLE [Concomitant]
     Indication: HYPERTENSION
     Dosage: 20 MILLIGRAM DAILY;
  5. LEVOTHYROXINE [Concomitant]
     Indication: HYPOTHYROIDISM
  6. CARVEDILOL [Concomitant]
     Indication: HYPERTENSION
     Dosage: 12.5 MILLIGRAM DAILY;
  7. AMLODIPINE [Concomitant]
     Indication: HYPERTENSION
     Dosage: 5 MILLIGRAM DAILY;
  8. TYLENOL [Concomitant]
     Indication: SLEEP DISORDER
  9. HOMYCYSTEINE VEGETABLE [Concomitant]
     Indication: NUTRITIONAL SUPPLEMENTATION

REACTIONS (2)
  - Rhinorrhoea [Not Recovered/Not Resolved]
  - Productive cough [Not Recovered/Not Resolved]
